FAERS Safety Report 15454440 (Version 1)
Quarter: 2018Q4

REPORT INFORMATION
  Report Type: Spontaneous
  Country: US (occurrence: US)
  Receive Date: 20181002
  Receipt Date: 20181002
  Transmission Date: 20190204
  Serious: No
  Sender: FDA-Public Use
  Company Number: US-HORIZON-KRY-0301-2018

PATIENT
  Age: 47 Year
  Sex: Male

DRUGS (1)
  1. KRYSTEXXA [Suspect]
     Active Substance: PEGLOTICASE
     Indication: GOUT
     Dosage: 8 MG INFUSION EVERY 2 WEEKS
     Route: 042
     Dates: start: 20180626, end: 20180807

REACTIONS (1)
  - Blood uric acid increased [Unknown]
